FAERS Safety Report 6171906-0 (Version None)
Quarter: 2009Q2

REPORT INFORMATION
  Report Type: 
  Country: None (occurrence: None)
  Receive Date: 20090429
  Receipt Date: 20090424
  Transmission Date: 20091009
  Serious: Yes (Life-Threatening, Hospitalization, Other)
  Sender: FDA-Public Use
  Company Number: US-MERCK-0904USA00360

PATIENT
  Age: 63 Year
  Sex: Female
  Weight: 172 kg

DRUGS (6)
  1. JANUVIA [Suspect]
     Indication: DIABETES MELLITUS
     Route: 048
     Dates: start: 20090101, end: 20090101
  2. JANUVIA [Suspect]
     Route: 048
     Dates: start: 20090225
  3. CORTICOSTEROIDS (UNSPECIFIED) [Concomitant]
     Route: 065
  4. FUROSEMIDE [Concomitant]
     Route: 065
  5. POTASSIUM (UNSPECIFIED) [Concomitant]
     Route: 065
  6. ALBUTEROL [Concomitant]
     Route: 065

REACTIONS (10)
  - ACUTE RESPIRATORY FAILURE [None]
  - ANAEMIA OF CHRONIC DISEASE [None]
  - ASTHMA [None]
  - BODY MASS INDEX INCREASED [None]
  - BRONCHITIS [None]
  - CHRONIC OBSTRUCTIVE PULMONARY DISEASE [None]
  - DIARRHOEA [None]
  - HYPERCAPNIA [None]
  - SLEEP APNOEA SYNDROME [None]
  - TREMOR [None]
